FAERS Safety Report 5588421-5 (Version None)
Quarter: 2008Q1

REPORT INFORMATION
  Report Type: 
  Country: None (occurrence: None)
  Receive Date: 20080111
  Receipt Date: 20071213
  Transmission Date: 20080703
  Serious: No
  Sender: FDA-Public Use
  Company Number: A0698807A

PATIENT
  Age: 70 Year
  Sex: Female

DRUGS (2)
  1. TYKERB [Suspect]
     Indication: BREAST CANCER
     Dosage: 1250MG PER DAY
     Route: 048
     Dates: start: 20071101
  2. DECADRON [Concomitant]

REACTIONS (2)
  - DIARRHOEA [None]
  - HYPERSOMNIA [None]
